FAERS Safety Report 7973997-0 (Version None)
Quarter: 2011Q4

REPORT INFORMATION
  Report Type: 
  Country: None (occurrence: None)
  Receive Date: 20111213
  Receipt Date: 20111206
  Transmission Date: 20120403
  Serious: Yes (Disabling)
  Sender: FDA-Public Use
  Company Number: US-GLAXOSMITHKLINE-A0956922A

PATIENT
  Age: 64 Year

DRUGS (3)
  1. FISH OIL [Concomitant]
  2. VOTRIENT [Suspect]
     Indication: METASTASES TO LUNG
     Dosage: 800MG PER DAY
     Route: 048
     Dates: start: 20110701
  3. MULTI-VITAMIN [Concomitant]

REACTIONS (13)
  - NAUSEA [None]
  - ASTHENIA [None]
  - BLISTER [None]
  - DIARRHOEA [None]
  - PRURITUS [None]
  - HYPERTENSION [None]
  - SLEEP DISORDER [None]
  - VOMITING [None]
  - MUSCLE SPASMS [None]
  - MIGRAINE [None]
  - NECK PAIN [None]
  - PHOTOPSIA [None]
  - AGEUSIA [None]
